FAERS Safety Report 22519026 (Version 1)
Quarter: 2023Q2

REPORT INFORMATION
  Report Type: Spontaneous
  Country: GB (occurrence: GB)
  Receive Date: 20230605
  Receipt Date: 20230605
  Transmission Date: 20230722
  Serious: Yes (Disabling)
  Sender: FDA-Public Use
  Company Number: None

PATIENT
  Age: 33 Year
  Sex: Female
  Weight: 73 kg

DRUGS (3)
  1. IVABRADINE [Suspect]
     Active Substance: IVABRADINE
     Indication: Ill-defined disorder
     Dosage: UNK
     Route: 065
     Dates: start: 20230526
  2. IVABRADINE [Suspect]
     Active Substance: IVABRADINE
     Dosage: UNK
     Route: 065
     Dates: start: 20230523
  3. PROPRANOLOL [Concomitant]
     Active Substance: PROPRANOLOL HYDROCHLORIDE
     Indication: Ill-defined disorder
     Dosage: TAKE 1-2 TABLET THREE TIMES A DAY
     Route: 065
     Dates: start: 20220630, end: 20230523

REACTIONS (1)
  - Arrhythmia [Recovered/Resolved]

NARRATIVE: CASE EVENT DATE: 20230526
